FAERS Safety Report 13735705 (Version 1)
Quarter: 2017Q3

REPORT INFORMATION
  Report Type: Spontaneous
  Country: US (occurrence: US)
  Receive Date: 20170708
  Receipt Date: 20170708
  Transmission Date: 20171127
  Serious: Yes (Life-Threatening, Hospitalization, Disabling, Other)
  Sender: FDA-Public Use
  Company Number: None

PATIENT
  Age: 42 Year
  Sex: Female
  Weight: 58.5 kg

DRUGS (7)
  1. CLONAZEPAM. [Suspect]
     Active Substance: CLONAZEPAM
     Indication: NEUROLOGICAL SYMPTOM
     Route: 048
  2. LISINOPRIL. [Concomitant]
     Active Substance: LISINOPRIL
  3. HALCION [Suspect]
     Active Substance: TRIAZOLAM
     Indication: SLEEP DISORDER
     Dosage: ?          OTHER STRENGTH:MG;QUANTITY:1 TABLET(S);?
     Route: 048
  4. OMEGA 3 [Concomitant]
     Active Substance: OMEGA-3 FATTY ACIDS
  5. LEVOTHROID [Concomitant]
     Active Substance: LEVOTHYROXINE SODIUM
  6. VITAMIN D3 [Concomitant]
     Active Substance: CHOLECALCIFEROL
  7. CARVEDILOL. [Concomitant]
     Active Substance: CARVEDILOL

REACTIONS (34)
  - Insomnia [None]
  - Paraesthesia [None]
  - Vibratory sense increased [None]
  - Facial pain [None]
  - Memory impairment [None]
  - Muscle twitching [None]
  - Headache [None]
  - Sinus operation [None]
  - Eye pain [None]
  - Drug dependence [None]
  - Drug tolerance [None]
  - Depression [None]
  - Bradyphrenia [None]
  - Muscle contractions involuntary [None]
  - Hypoaesthesia [None]
  - Burning sensation [None]
  - Peripheral nervous system function test abnormal [None]
  - Tinnitus [None]
  - Photophobia [None]
  - Communication disorder [None]
  - Disturbance in attention [None]
  - Cognitive disorder [None]
  - Hyperacusis [None]
  - Visual impairment [None]
  - Decreased appetite [None]
  - Facial neuralgia [None]
  - Withdrawal syndrome [None]
  - Agoraphobia [None]
  - Weight decreased [None]
  - Loss of personal independence in daily activities [None]
  - Poor quality sleep [None]
  - Nervous system disorder [None]
  - Agitation [None]
  - Anxiety [None]

NARRATIVE: CASE EVENT DATE: 19871115
